FAERS Safety Report 7075572-1 (Version None)
Quarter: 2010Q4

REPORT INFORMATION
  Report Type: 
  Country: None (occurrence: None)
  Receive Date: 20101030
  Receipt Date: 20101021
  Transmission Date: 20110411
  Serious: No
  Sender: FDA-Public Use
  Company Number: US-WYE-H18295110

PATIENT
  Sex: Male
  Weight: 79.45 kg

DRUGS (5)
  1. PRISTIQ [Suspect]
     Indication: ANXIETY
     Dosage: 1/2 TABLET , 25 MG DAILY
     Route: 048
     Dates: start: 20090101
  2. PRISTIQ [Suspect]
     Route: 048
  3. PRISTIQ [Suspect]
     Route: 048
  4. PRISTIQ [Suspect]
     Route: 048
  5. ATIVAN [Concomitant]
     Dosage: ^LOW DOSE^
     Route: 048

REACTIONS (8)
  - DRUG INEFFECTIVE [None]
  - FATIGUE [None]
  - HYPERCHOLESTEROLAEMIA [None]
  - MEMORY IMPAIRMENT [None]
  - TINNITUS [None]
  - UNEVALUABLE EVENT [None]
  - WEIGHT INCREASED [None]
  - WRONG TECHNIQUE IN DRUG USAGE PROCESS [None]
